FAERS Safety Report 4485488-2 (Version None)
Quarter: 2004Q4

REPORT INFORMATION
  Report Type: 
  Country: None (occurrence: None)
  Receive Date: 20041026
  Receipt Date: 20041014
  Transmission Date: 20050328
  Serious: Yes (Life-Threatening, Other)
  Sender: FDA-Public Use
  Company Number: GBWYE114818OCT04

PATIENT
  Age: 44 Year
  Sex: Female
  Weight: 67 kg

DRUGS (5)
  1. ENBREL [Suspect]
     Indication: RHEUMATOID ARTHRITIS
     Dosage: 25MG FREQUENCY UNSPECIFIED
     Route: 058
     Dates: start: 20040817, end: 20040820
  2. METHOTREXATE [Concomitant]
     Route: 048
     Dates: start: 20040430
  3. CODEINE [Concomitant]
     Dosage: AS REQUIRED
     Route: 048
  4. NITRAZEPAM [Concomitant]
     Dosage: AS REQUIRED
     Route: 048
  5. ORAL CONTRACEPTIVE NOS [Concomitant]
     Dosage: UNKNOWN
     Route: 048

REACTIONS (3)
  - RASH [None]
  - SWOLLEN TONGUE [None]
  - SYNCOPE [None]
